FAERS Safety Report 9910528 (Version 2)
Quarter: 2014Q1

REPORT INFORMATION
  Report Type: Spontaneous
  Country: US (occurrence: US)
  Receive Date: 20140219
  Receipt Date: 20140219
  Transmission Date: 20141002
  Serious: No
  Sender: FDA-Public Use
  Company Number: US-GILEAD-2012-0051599

PATIENT
  Sex: Female

DRUGS (3)
  1. LETAIRIS [Suspect]
     Indication: PULMONARY HYPERTENSION
     Dosage: 10 MG, UNK
     Route: 048
     Dates: start: 20110926
  2. LETAIRIS [Suspect]
     Indication: ATRIAL SEPTAL DEFECT REPAIR
  3. LETAIRIS [Suspect]
     Indication: PULMONARY EMBOLISM

REACTIONS (2)
  - Insomnia [Unknown]
  - Nasopharyngitis [Unknown]
